FAERS Safety Report 14181881 (Version 4)
Quarter: 2017Q4

REPORT INFORMATION
  Report Type: Report from Study
  Country: None (occurrence: TR)
  Receive Date: 20171113
  Receipt Date: 20171212
  Transmission Date: 20180321
  Serious: Yes (Hospitalization)
  Sender: FDA-Public Use
  Company Number: TR-ABBVIE-17K-161-2156269-00

PATIENT
  Age: 80 Year
  Sex: Female
  Weight: 54 kg

DRUGS (6)
  1. MADOPAR HBS [Concomitant]
     Active Substance: BENSERAZIDE HYDROCHLORIDE\LEVODOPA
     Indication: PARKINSON^S DISEASE
     Route: 048
     Dates: start: 201708
  2. PK MERZ [Concomitant]
     Active Substance: AMANTADINE SULFATE
     Indication: PARKINSON^S DISEASE
     Route: 048
     Dates: start: 2015
  3. DUODOPA [Suspect]
     Active Substance: CARBIDOPA\LEVODOPA
     Dosage: MORNING: 2.8 ML?CONTINOUS: 1.7 ML?EXTRA: 0.5 ML
     Route: 050
     Dates: start: 20171109
  4. CEDRINA [Concomitant]
     Indication: DEPRESSION
     Route: 048
     Dates: start: 201708
  5. DUODOPA [Suspect]
     Active Substance: CARBIDOPA\LEVODOPA
     Dosage: MORNING: 2.8 ML?CONTINUOUS: 1.7 ML ?EXTRA: 0.5 ML
     Route: 050
     Dates: start: 20171107, end: 20171109
  6. DUODOPA [Suspect]
     Active Substance: CARBIDOPA\LEVODOPA
     Indication: PARKINSON^S DISEASE
     Dosage: MORNING: 3.5 ML?CONTINUOUS: 2.2 ML ?EXTRA: 1.0 ML
     Route: 050
     Dates: start: 20171102, end: 20171107

REACTIONS (6)
  - C-reactive protein increased [Recovered/Resolved]
  - Stoma site oedema [Recovered/Resolved]
  - Stoma site odour [Recovered/Resolved]
  - Bradykinesia [Recovered/Resolved]
  - Stoma site discharge [Recovered/Resolved]
  - Stoma site candida [Recovered/Resolved]

NARRATIVE: CASE EVENT DATE: 201711
